FAERS Safety Report 25837580 (Version 1)
Quarter: 2025Q3

REPORT INFORMATION
  Report Type: Spontaneous
  Country: EU (occurrence: EU)
  Receive Date: 20250923
  Receipt Date: 20250923
  Transmission Date: 20251021
  Serious: Yes (Hospitalization, Other)
  Sender: SANDOZ
  Company Number: EU-ABBVIE-6398050

PATIENT
  Age: 53 Year
  Sex: Male
  Weight: 87 kg

DRUGS (4)
  1. ADALIMUMAB [Suspect]
     Active Substance: ADALIMUMAB
     Indication: Psoriasis
     Route: 058
     Dates: start: 202203
  2. IXEKIZUMAB [Concomitant]
     Active Substance: IXEKIZUMAB
     Route: 058
  3. IXEKIZUMAB [Concomitant]
     Active Substance: IXEKIZUMAB
     Indication: Psoriatic arthropathy
     Route: 058
  4. METHOTREXATE [Concomitant]
     Active Substance: METHOTREXATE
     Indication: Psoriasis
     Route: 065
     Dates: start: 2018

REACTIONS (10)
  - Pneumonia [Recovered/Resolved]
  - Nodule [Unknown]
  - Beta haemolytic streptococcal infection [Recovered/Resolved]
  - Scabies [Recovered/Resolved]
  - Respiratory tract infection [Recovered/Resolved]
  - Loss of therapeutic response [Unknown]
  - Psoriatic arthropathy [Recovering/Resolving]
  - Beta haemolytic streptococcal infection [Unknown]
  - Arthralgia [Unknown]
  - Therapeutic response decreased [Unknown]

NARRATIVE: CASE EVENT DATE: 20221201
